FAERS Safety Report 4341808-0 (Version None)
Quarter: 2004Q2

REPORT INFORMATION
  Report Type: 
  Country: None (occurrence: None)
  Receive Date: 20040420
  Receipt Date: 20040408
  Transmission Date: 20050107
  Serious: Yes (Other)
  Sender: FDA-Public Use
  Company Number: FI-GLAXOSMITHKLINE-B0329553A

PATIENT
  Age: 48 Year
  Sex: Female

DRUGS (2)
  1. ZYBAN [Suspect]
     Dosage: 150MG TWICE PER DAY
     Route: 048
     Dates: start: 20040204
  2. SYMBICORT TURBOHALER [Concomitant]
     Indication: ASTHMA
     Dosage: 1U TWICE PER DAY
     Route: 055
     Dates: start: 20040204

REACTIONS (1)
  - POSTMENOPAUSAL HAEMORRHAGE [None]
